FAERS Safety Report 16209600 (Version 3)
Quarter: 2020Q4

REPORT INFORMATION
  Report Type: Spontaneous
  Country: RU (occurrence: RU)
  Receive Date: 20190417
  Receipt Date: 20201110
  Transmission Date: 20210113
  Serious: Yes (Death, Hospitalization, Other)
  Sender: FDA-Public Use
  Company Number: RU-PFIZER INC-2019163029

PATIENT
  Age: 50 Year
  Sex: Male

DRUGS (2)
  1. JAQINUS [Suspect]
     Active Substance: TOFACITINIB CITRATE
     Indication: RHEUMATOID ARTHRITIS
     Dosage: 1 DF, 2X/DAY
     Route: 048
     Dates: start: 201903, end: 201904
  2. METHOTREXATE. [Concomitant]
     Active Substance: METHOTREXATE
     Dosage: 22 MG/WEEK

REACTIONS (9)
  - Pneumonia [Fatal]
  - Agranulocytosis [Fatal]
  - Haemoglobin decreased [Fatal]
  - Thrombocytopenia [Fatal]
  - Transaminases increased [Fatal]
  - Multiple organ dysfunction syndrome [Fatal]
  - Sepsis [Fatal]
  - Rash [Fatal]
  - Hypercreatinaemia [Fatal]

NARRATIVE: CASE EVENT DATE: 201904
